FAERS Safety Report 18974760 (Version 1)
Quarter: 2021Q1

REPORT INFORMATION
  Report Type: Spontaneous
  Country: CA (occurrence: CA)
  Receive Date: 20210305
  Receipt Date: 20210305
  Transmission Date: 20210420
  Serious: Yes (Other)
  Sender: FDA-Public Use
  Company Number: CA-PFIZER INC-2021224486

PATIENT

DRUGS (1)
  1. PROPOFOL. [Suspect]
     Active Substance: PROPOFOL
     Indication: SEDATION
     Dosage: UNK

REACTIONS (7)
  - Sepsis [Unknown]
  - Hyperthermia malignant [Unknown]
  - Hypoxia [Unknown]
  - Lactic acidosis [Unknown]
  - Idiosyncratic drug reaction [Unknown]
  - Bradyarrhythmia [Unknown]
  - Mitochondrial cytopathy [Unknown]
